FAERS Safety Report 7657156-7 (Version None)
Quarter: 2011Q3

REPORT INFORMATION
  Report Type: 
  Country: None (occurrence: None)
  Receive Date: 20110804
  Receipt Date: 20110728
  Transmission Date: 20111222
  Serious: Yes (Death, Hospitalization)
  Sender: FDA-Public Use
  Company Number: US-SANOFI-AVENTIS-2011SA043731

PATIENT
  Age: 68 Year
  Sex: Male
  Weight: 91 kg

DRUGS (9)
  1. DABIGATRAN [Concomitant]
  2. ASPIRIN [Concomitant]
  3. DRONEDARONE HCL [Suspect]
     Indication: ATRIAL FIBRILLATION
     Route: 048
     Dates: start: 20101129, end: 20110219
  4. SIMVASTATIN [Concomitant]
  5. XOPENEX [Concomitant]
  6. CARVEDIOL [Concomitant]
  7. POTASSIUM CHLORIDE [Concomitant]
  8. FUROSEMIDE [Concomitant]
  9. LISINOPRIL [Concomitant]

REACTIONS (1)
  - ISCHAEMIC STROKE [None]
